FAERS Safety Report 23380535 (Version 1)
Quarter: 2024Q1

REPORT INFORMATION
  Report Type: Spontaneous
  Country: DE (occurrence: DE)
  Receive Date: 20240109
  Receipt Date: 20240109
  Transmission Date: 20240409
  Serious: No
  Sender: FDA-Public Use
  Company Number: None

PATIENT
  Age: 21 Year
  Sex: Female
  Weight: 57 kg

DRUGS (1)
  1. IBUPROFEN [Suspect]
     Active Substance: IBUPROFEN
     Indication: Pelvic pain
     Dosage: 1 DOSAGE FORM (TOTAL) (TABLET)
     Route: 048
     Dates: start: 20231021, end: 20231021

REACTIONS (4)
  - Dysphagia [Recovered/Resolved]
  - Rash pruritic [Recovered/Resolved]
  - Urticaria [Recovered/Resolved]
  - Perioral dermatitis [Recovered/Resolved]

NARRATIVE: CASE EVENT DATE: 20231021
